FAERS Safety Report 19461781 (Version 1)
Quarter: 2021Q2

REPORT INFORMATION
  Report Type: Spontaneous
  Country: GB (occurrence: GB)
  Receive Date: 20210625
  Receipt Date: 20210625
  Transmission Date: 20210717
  Serious: Yes (Hospitalization)
  Sender: FDA-Public Use
  Company Number: GB-MYLANLABS-2021M1036986

PATIENT
  Age: 69 Year
  Sex: Male

DRUGS (4)
  1. PREDNISOLONE. [Suspect]
     Active Substance: PREDNISOLONE
     Indication: CHOLANGITIS SCLEROSING
     Dosage: 40 MILLIGRAM, QD
     Route: 048
  2. PREDNISOLONE. [Suspect]
     Active Substance: PREDNISOLONE
     Indication: IMMUNE-MEDIATED ENTEROCOLITIS
     Dosage: 140 MILLIGRAM, QD, 2MG/KG
     Route: 048
  3. MYCOPHENOLATE MOFETIL. [Suspect]
     Active Substance: MYCOPHENOLATE MOFETIL
     Indication: CHOLANGITIS SCLEROSING
     Dosage: 1 GRAM, BID
     Route: 048
  4. PREDNISOLONE. [Suspect]
     Active Substance: PREDNISOLONE
     Dosage: 60 MILLIGRAM, QD
     Route: 048

REACTIONS (1)
  - Drug ineffective [Unknown]
